FAERS Safety Report 16865908 (Version 2)
Quarter: 2020Q1

REPORT INFORMATION
  Report Type: Spontaneous
  Country: ES (occurrence: ES)
  Receive Date: 20190930
  Receipt Date: 20200129
  Transmission Date: 20200409
  Serious: Yes (Other)
  Sender: FDA-Public Use
  Company Number: ES-BIOGEN-2019BI00789631

PATIENT
  Age: 10 Month
  Sex: Male

DRUGS (2)
  1. GLYCOPYRROLATE. [Concomitant]
     Active Substance: GLYCOPYRROLATE
     Indication: PRODUCT USED FOR UNKNOWN INDICATION
     Route: 065
  2. SPINRAZA [Suspect]
     Active Substance: NUSINERSEN
     Indication: SPINAL MUSCULAR ATROPHY
     Route: 065

REACTIONS (8)
  - Salivary hypersecretion [Unknown]
  - Bacterial disease carrier [Unknown]
  - Poor feeding infant [Unknown]
  - Weight gain poor [Unknown]
  - Respiratory disorder [Unknown]
  - Apnoea [Unknown]
  - Choking [Unknown]
  - Bronchial secretion retention [Unknown]
